FAERS Safety Report 4856234-5 (Version None)
Quarter: 2005Q4

REPORT INFORMATION
  Report Type: 
  Country: None (occurrence: None)
  Receive Date: 20051215
  Receipt Date: 20051215
  Transmission Date: 20060501
  Serious: Yes (Death, Congenital Anomaly)
  Sender: FDA-Public Use
  Company Number: None

PATIENT
  Age: 37 Year
  Sex: Female
  Weight: 54.4316 kg

DRUGS (2)
  1. PAROXETINE     20 MG TABLETS    APOTEX CORP. [Suspect]
     Indication: ANXIETY
     Dosage: 20 MG     ONCE DAILY   PO
     Route: 048
     Dates: start: 19940915, end: 20051214
  2. PAROXETINE     20 MG TABLETS    APOTEX CORP. [Suspect]
     Indication: DEPRESSION
     Dosage: 20 MG     ONCE DAILY   PO
     Route: 048
     Dates: start: 19940915, end: 20051214

REACTIONS (6)
  - CARDIAC ARREST [None]
  - DRUG EXPOSURE DURING PREGNANCY [None]
  - HEART DISEASE CONGENITAL [None]
  - HYPERTROPHIC CARDIOMYOPATHY [None]
  - ILL-DEFINED DISORDER [None]
  - RESTLESSNESS [None]
